FAERS Safety Report 5273904-8 (Version None)
Quarter: 2007Q1

REPORT INFORMATION
  Report Type: 
  Country: None (occurrence: None)
  Receive Date: 20070323
  Receipt Date: 20070313
  Transmission Date: 20070707
  Serious: Yes (Other)
  Sender: FDA-Public Use
  Company Number: PHBS2007JP04611

PATIENT

DRUGS (1)
  1. ZOMERA [Suspect]
     Indication: BONE LESION
     Dosage: 4 MG
     Route: 042

REACTIONS (1)
  - CYANOSIS [None]
